FAERS Safety Report 12929101 (Version 1)
Quarter: 2016Q4

REPORT INFORMATION
  Report Type: Spontaneous
  Country: US (occurrence: US)
  Receive Date: 20161110
  Receipt Date: 20161110
  Transmission Date: 20170207
  Serious: Yes (Death, Hospitalization, Other)
  Sender: FDA-Public Use
  Company Number: US-PFIZER INC-2015291986

PATIENT
  Age: 66 Year
  Sex: Male
  Weight: 120 kg

DRUGS (22)
  1. VANCOMYCIN [Suspect]
     Active Substance: VANCOMYCIN
     Indication: ENTEROCOCCAL BACTERAEMIA
     Dosage: 1500 MG, (D5W 250)
     Route: 042
     Dates: start: 20150817, end: 20150828
  2. CYTARABINE. [Suspect]
     Active Substance: CYTARABINE
     Indication: ACUTE MYELOID LEUKAEMIA
     Dosage: UNK
     Dates: start: 20150206, end: 20150213
  3. CLADRIBINE. [Suspect]
     Active Substance: CLADRIBINE
     Indication: ACUTE MYELOID LEUKAEMIA
     Dosage: UNK
     Dates: start: 20150625
  4. DAUNORUBICIN [Suspect]
     Active Substance: DAUNORUBICIN
     Dosage: UNK
     Dates: start: 20150417
  5. HYDREA [Suspect]
     Active Substance: HYDROXYUREA
     Indication: BONE MARROW DISORDER
     Dosage: 2500 MG, FREQ: 2 DAY; INTERVAL: 1
  6. BENADRYL [Concomitant]
     Active Substance: DIPHENHYDRAMINE HYDROCHLORIDE
     Indication: PREMEDICATION
     Dosage: UNK
     Dates: start: 20150724, end: 20150808
  7. MITOXANTRONE HCL [Suspect]
     Active Substance: MITOXANTRONE HYDROCHLORIDE
     Indication: ACUTE MYELOID LEUKAEMIA
     Dosage: UNK
     Dates: start: 20150514
  8. DAPTOMYCIN. [Concomitant]
     Active Substance: DAPTOMYCIN
     Dosage: UNK
  9. HYDREA [Suspect]
     Active Substance: HYDROXYUREA
     Dosage: 500 MG, DAILY
     Dates: start: 20150714
  10. DAUNORUBICIN [Suspect]
     Active Substance: DAUNORUBICIN
     Indication: ACUTE MYELOID LEUKAEMIA
     Dosage: UNK
     Dates: start: 20150206, end: 20150213
  11. HYDREA [Suspect]
     Active Substance: HYDROXYUREA
     Dosage: 500 MG, DAILY
     Dates: start: 20150619
  12. MYLOTARG [Suspect]
     Active Substance: GEMTUZUMAB OZOGAMICIN
     Indication: ACUTE MYELOID LEUKAEMIA
     Dosage: FREQ: CYCLICAL
     Route: 042
     Dates: start: 20150724, end: 20150813
  13. CYTARABINE. [Suspect]
     Active Substance: CYTARABINE
     Dosage: UNK
     Dates: start: 20150817
  14. CYTARABINE. [Suspect]
     Active Substance: CYTARABINE
     Dosage: UNK
     Dates: start: 20150318
  15. MEROPENEM. [Concomitant]
     Active Substance: MEROPENEM
  16. VORICONAZOLE. [Concomitant]
     Active Substance: VORICONAZOLE
  17. CYTARABINE. [Suspect]
     Active Substance: CYTARABINE
     Dosage: UNK
     Dates: start: 20150514
  18. TYLENOL [Concomitant]
     Active Substance: ACETAMINOPHEN
     Indication: PREMEDICATION
     Dosage: UNK
     Dates: start: 20150724, end: 20150808
  19. CYTARABINE. [Suspect]
     Active Substance: CYTARABINE
     Dosage: UNK
     Dates: start: 20150625
  20. ETOPOSIDE. [Suspect]
     Active Substance: ETOPOSIDE
     Indication: ACUTE MYELOID LEUKAEMIA
     Dosage: UNK
     Dates: start: 20150514
  21. DAUNORUBICIN [Suspect]
     Active Substance: DAUNORUBICIN
     Dosage: UNK
     Dates: start: 20150318
  22. MICAFUNGIN SODIUM [Concomitant]
     Active Substance: MICAFUNGIN SODIUM

REACTIONS (15)
  - Deep vein thrombosis [Unknown]
  - Leukaemia recurrent [Unknown]
  - Hypoxia [Unknown]
  - Enterococcal infection [Unknown]
  - Disseminated intravascular coagulation [Unknown]
  - Bacteraemia [Unknown]
  - Disease progression [Fatal]
  - Haematoma [Unknown]
  - Pulmonary embolism [Unknown]
  - Mitral valve incompetence [Unknown]
  - Fall [Unknown]
  - Thrombocytopenia [Unknown]
  - Myalgia [Unknown]
  - Interstitial lung disease [Unknown]
  - Febrile neutropenia [Unknown]

NARRATIVE: CASE EVENT DATE: 20150201
